FAERS Safety Report 18832830 (Version 1)
Quarter: 2021Q1

REPORT INFORMATION
  Report Type: Spontaneous
  Country: CN (occurrence: CN)
  Receive Date: 20210203
  Receipt Date: 20210203
  Transmission Date: 20210419
  Serious: Yes (Hospitalization)
  Sender: FDA-Public Use
  Company Number: CN-SA-2021SA011812

PATIENT
  Age: 11 Day

DRUGS (3)
  1. CLEXANE (AMPOULE) [Suspect]
     Active Substance: ENOXAPARIN SODIUM
     Indication: ANTIPHOSPHOLIPID SYNDROME
     Dosage: 0.4 ML, BID
     Route: 064
  2. CLEXANE (AMPOULE) [Suspect]
     Active Substance: ENOXAPARIN SODIUM
     Indication: SYSTEMIC LUPUS ERYTHEMATOSUS
     Dosage: 0.4 ML, QD
     Route: 064
     Dates: start: 202011
  3. CLEXANE (AMPOULE) [Concomitant]
     Active Substance: ENOXAPARIN SODIUM
     Indication: VARICOSE VEIN

REACTIONS (2)
  - Premature baby [Unknown]
  - Foetal exposure during pregnancy [Unknown]
